FAERS Safety Report 9347486 (Version 1)
Quarter: 2013Q2

REPORT INFORMATION
  Report Type: Spontaneous
  Country: GB (occurrence: GB)
  Receive Date: 20130614
  Receipt Date: 20130614
  Transmission Date: 20140414
  Serious: Yes (Hospitalization)
  Sender: FDA-Public Use
  Company Number: GB-RANBAXY-2013R1-69940

PATIENT
  Age: 37 Year
  Sex: Female

DRUGS (3)
  1. NAPROXEN [Suspect]
     Indication: PRODUCT USED FOR UNKNOWN INDICATION
     Dosage: 50 MG, UNK
     Route: 048
  2. SERTRALINE [Suspect]
     Indication: DEPRESSION
     Dosage: UNK
     Route: 048
  3. OXYCODONE [Concomitant]
     Indication: INTERVERTEBRAL DISC PROTRUSION
     Dosage: 120 MG, BID
     Route: 048

REACTIONS (2)
  - Abdominal pain upper [Unknown]
  - Gastritis [Recovering/Resolving]
